FAERS Safety Report 5149967-7 (Version None)
Quarter: 2006Q4

REPORT INFORMATION
  Report Type: 
  Country: None (occurrence: None)
  Receive Date: 20061108
  Receipt Date: 20061023
  Transmission Date: 20070319
  Serious: Yes (Other)
  Sender: FDA-Public Use
  Company Number: 2006134141

PATIENT
  Age: 76 Year
  Sex: Male
  Weight: 96.6162 kg

DRUGS (7)
  1. ATORVASTATIN CALCIUM [Suspect]
     Indication: BLOOD CHOLESTEROL INCREASED
     Dosage: 20 MG (20 MG, 1 IN 1 D)
     Dates: start: 19940101, end: 20061015
  2. VALSARTAN [Concomitant]
  3. ZIAC [Concomitant]
  4. GLUCOVANCE [Concomitant]
  5. FISH OIL             (FISH OIL) [Concomitant]
  6. MULTI-VITAMINS [Concomitant]
  7. ASPIRIN [Concomitant]

REACTIONS (4)
  - ABASIA [None]
  - BALANCE DISORDER [None]
  - MUSCULAR WEAKNESS [None]
  - TREMOR [None]
